FAERS Safety Report 7860114-0 (Version None)
Quarter: 2011Q4

REPORT INFORMATION
  Report Type: 
  Country: None (occurrence: None)
  Receive Date: 20111025
  Receipt Date: 20111011
  Transmission Date: 20120403
  Serious: Yes (Death, Hospitalization)
  Sender: FDA-Public Use
  Company Number: UTC-010405

PATIENT
  Age: 66 Year
  Sex: Male
  Weight: 81.8 kg

DRUGS (6)
  1. COUMADIN [Concomitant]
  2. ASPIRIN [Concomitant]
  3. DIURETICS (DIURETICS) [Concomitant]
  4. O2 (OXYGEN) [Concomitant]
  5. REMODULIN [Suspect]
     Indication: PULMONARY ARTERIAL HYPERTENSION
     Dosage: (0.0295 UG/KG), INTRAVENOUS
     Route: 042
     Dates: start: 20110610
  6. REVATIO [Concomitant]

REACTIONS (2)
  - GENERAL PHYSICAL HEALTH DETERIORATION [None]
  - CARDIAC DISORDER [None]
